FAERS Safety Report 5570696-X (Version None)
Quarter: 2007Q4

REPORT INFORMATION
  Report Type: 
  Country: None (occurrence: None)
  Receive Date: 20071221
  Receipt Date: 20071210
  Transmission Date: 20080405
  Serious: Yes (Other)
  Sender: FDA-Public Use
  Company Number: NO-TEVA-165325ISR

PATIENT
  Sex: Female

DRUGS (5)
  1. CARBOPLATIN [Suspect]
     Indication: OVARIAN CANCER
     Dosage: AUC 5
     Dates: start: 20060101, end: 20060401
  2. PACLITAXEL [Concomitant]
     Indication: OVARIAN CANCER
     Dates: start: 20060101, end: 20060401
  3. ESTRADIOL VALERATE [Concomitant]
  4. LAMOTRIGINE [Concomitant]
  5. PREGABALIN [Concomitant]

REACTIONS (1)
  - BONE INFARCTION [None]
